FAERS Safety Report 13112972 (Version 1)
Quarter: 2017Q1

REPORT INFORMATION
  Report Type: Spontaneous
  Country: US (occurrence: US)
  Receive Date: 20170112
  Receipt Date: 20170112
  Transmission Date: 20170509
  Serious: Yes (Other)
  Sender: FDA-Public Use
  Company Number: None

PATIENT
  Age: 23 Year
  Sex: Female
  Weight: 114.86 kg

DRUGS (1)
  1. ARMODOFINIL 250MG [Suspect]
     Active Substance: ARMODAFINIL
     Indication: NARCOLEPSY
     Route: 048
     Dates: start: 20161128

REACTIONS (1)
  - Anxiety [None]

NARRATIVE: CASE EVENT DATE: 20161128
